FAERS Safety Report 22764659 (Version 8)
Quarter: 2024Q3

REPORT INFORMATION
  Report Type: Report from Study
  Country: US (occurrence: US)
  Receive Date: 20230731
  Receipt Date: 20240814
  Transmission Date: 20241017
  Serious: No
  Sender: ACADIA PHARMACEUTICALS
  Company Number: US-ACADIA PHARMACEUTICALS INC.-ACA-2023-TRF-002824

PATIENT
  Age: 14 Year
  Sex: Female

DRUGS (19)
  1. DAYBUE [Suspect]
     Active Substance: TROFINETIDE
     Indication: Rett syndrome
     Dosage: 15 MILLILITER, BID
     Route: 065
     Dates: start: 20230613
  2. DAYBUE [Suspect]
     Active Substance: TROFINETIDE
     Dosage: 17 MILLILITER, BID
     Route: 065
  3. DAYBUE [Suspect]
     Active Substance: TROFINETIDE
     Dosage: 10 MILLILITER, BID
     Route: 065
  4. DAYBUE [Suspect]
     Active Substance: TROFINETIDE
     Dosage: 15 MILLILITER, BID
     Route: 065
  5. DAYBUE [Suspect]
     Active Substance: TROFINETIDE
     Dosage: 17 MILLILITER, BID
     Route: 048
  6. DAYBUE [Suspect]
     Active Substance: TROFINETIDE
     Dosage: 60 MILLILITER, BID
     Route: 048
  7. DAYBUE [Suspect]
     Active Substance: TROFINETIDE
     Dosage: 10 MILLILITER, BID
     Route: 065
  8. DAYBUE [Suspect]
     Active Substance: TROFINETIDE
     Dosage: 15 MILLILITER, BID
     Route: 065
  9. DAYBUE [Suspect]
     Active Substance: TROFINETIDE
     Dosage: 25 MILLILITER, BID
     Route: 048
  10. DAYBUE [Suspect]
     Active Substance: TROFINETIDE
     Dosage: 60 MILLILITER, BID
     Route: 048
  11. DAYBUE [Suspect]
     Active Substance: TROFINETIDE
     Dosage: 10 MILLILITER, BID
     Route: 048
  12. DAYBUE [Suspect]
     Active Substance: TROFINETIDE
     Dosage: 35 MILLILITER, BID
     Route: 048
  13. DAYBUE [Suspect]
     Active Substance: TROFINETIDE
     Dosage: 38 MILLILITER, BID
     Route: 048
  14. DAYBUE [Suspect]
     Active Substance: TROFINETIDE
     Dosage: 12 MILLILITER
     Route: 048
  15. DAYBUE [Suspect]
     Active Substance: TROFINETIDE
     Dosage: 10 MILLILITER, QD
     Route: 048
  16. IBUPROFEN [Concomitant]
     Active Substance: IBUPROFEN
  17. VITAMIN D NOS [Concomitant]
     Active Substance: CHOLECALCIFEROL\ERGOCALCIFEROL
  18. CETIRIZINE HYDROCHLORIDE [Concomitant]
     Active Substance: CETIRIZINE HYDROCHLORIDE
     Route: 048
  19. MUCINEX [Concomitant]
     Active Substance: GUAIFENESIN
     Route: 048

REACTIONS (34)
  - Hypophagia [Unknown]
  - Weight decreased [Unknown]
  - Anger [Unknown]
  - Drug ineffective [Not Recovered/Not Resolved]
  - Inappropriate schedule of product administration [Not Recovered/Not Resolved]
  - Aggression [Not Recovered/Not Resolved]
  - Anger [Not Recovered/Not Resolved]
  - Irritability [Not Recovered/Not Resolved]
  - Balance disorder [Not Recovered/Not Resolved]
  - Product use complaint [Not Recovered/Not Resolved]
  - Crying [Not Recovered/Not Resolved]
  - Irritability [Not Recovered/Not Resolved]
  - Intrauterine contraception [Unknown]
  - Abdominal discomfort [Unknown]
  - Mood altered [Unknown]
  - Somnolence [Unknown]
  - Drooling [Not Recovered/Not Resolved]
  - Underdose [Not Recovered/Not Resolved]
  - Weight decreased [Recovered/Resolved]
  - Mood altered [Unknown]
  - Anger [Unknown]
  - Crying [Unknown]
  - Aggression [Not Recovered/Not Resolved]
  - Logorrhoea [Not Recovered/Not Resolved]
  - Somnolence [Unknown]
  - Thirst [Unknown]
  - Abdominal discomfort [Unknown]
  - Screaming [Unknown]
  - Drooling [Not Recovered/Not Resolved]
  - Diarrhoea [Recovered/Resolved]
  - Diarrhoea [Not Recovered/Not Resolved]
  - Diarrhoea [Recovered/Resolved]
  - Diarrhoea [Not Recovered/Not Resolved]
  - Decreased appetite [Unknown]

NARRATIVE: CASE EVENT DATE: 20230710
